FAERS Safety Report 8765961 (Version 1)
Quarter: 2012Q4

REPORT INFORMATION
  Report Type: 
  Country: US (occurrence: US)
  Receive Date: 20120904
  Receipt Date: 20120904
  Transmission Date: 20130627
  Serious: Yes (Other)
  Sender: FDA-Public Use
  Company Number: US-ASTRAZENECA-2012SE65014

PATIENT
  Age: 56 Year
  Sex: Female

DRUGS (2)
  1. CRESTOR [Suspect]
     Route: 048
  2. SIMVASTATIN [Suspect]
     Route: 065

REACTIONS (7)
  - Fall [Unknown]
  - Joint injury [Unknown]
  - Fracture [Unknown]
  - Exostosis [Unknown]
  - Hypoaesthesia [Unknown]
  - Influenza like illness [Unknown]
  - Lipids increased [Unknown]
